FAERS Safety Report 17313418 (Version 1)
Quarter: 2020Q1

REPORT INFORMATION
  Report Type: Spontaneous
  Country: US (occurrence: US)
  Receive Date: 20200124
  Receipt Date: 20200124
  Transmission Date: 20200409
  Serious: No
  Sender: FDA-Public Use
  Company Number: US-LUPIN PHARMACEUTICALS INC.-2019-04216

PATIENT
  Sex: Male

DRUGS (2)
  1. MORPHINE SULPHATE EXTENDED RELEASE TABLET 60 MG [Suspect]
     Active Substance: MORPHINE SULFATE
     Indication: PAIN
     Dosage: 60 MILLIGRAM, BID
     Route: 065
  2. MORPHINE SULPHATE EXTENDED RELEASE TABLET 30 MG [Suspect]
     Active Substance: MORPHINE SULFATE
     Indication: PAIN
     Dosage: 30 MILLIGRAM, BID
     Route: 065
     Dates: start: 20190130, end: 20190614

REACTIONS (8)
  - Influenza [Unknown]
  - Anxiety [Unknown]
  - Withdrawal syndrome [Unknown]
  - Insomnia [Unknown]
  - Pain [Unknown]
  - Palpitations [Unknown]
  - Formication [Unknown]
  - Back pain [Unknown]

NARRATIVE: CASE EVENT DATE: 2019
